FAERS Safety Report 8391188-9 (Version None)
Quarter: 2012Q1

REPORT INFORMATION
  Report Type: 
  Country: None (occurrence: None)
  Receive Date: 20120323
  Receipt Date: 20110418
  Transmission Date: 20120608
  Serious: Yes (Other)
  Sender: FDA-Public Use
  Company Number: 163-21880-11033263

PATIENT
  Age: 48 Year
  Sex: Male

DRUGS (2)
  1. REVLIMID [Suspect]
     Indication: MULTIPLE MYELOMA
     Dosage: 15 MG, 1 IN 1 D ; 25 MG, DAILY X 21 DAYS EVERY 28 DAYS
     Dates: start: 20110201, end: 20110301
  2. REVLIMID [Suspect]
     Indication: MULTIPLE MYELOMA
     Dosage: 15 MG, 1 IN 1 D ; 25 MG, DAILY X 21 DAYS EVERY 28 DAYS
     Dates: start: 20100917

REACTIONS (1)
  - MULTIPLE MYELOMA [None]
